FAERS Safety Report 10469603 (Version 1)
Quarter: 2014Q3

REPORT INFORMATION
  Report Type: Spontaneous
  Country: US (occurrence: None)
  Receive Date: 20140919
  Receipt Date: 20140919
  Transmission Date: 20150326
  Serious: Yes (Hospitalization)
  Sender: FDA-Public Use
  Company Number: 2014COV00115

PATIENT
  Age: 24 Year
  Sex: Female
  Weight: 145.3 kg

DRUGS (7)
  1. ASPIRIN. [Concomitant]
     Active Substance: ASPIRIN
  2. REMODULIN (TRESPROSTINIL SODIUM) [Suspect]
     Active Substance: TREPROSTINIL
     Indication: PULMONARY HYPERTENSION
     Route: 058
     Dates: start: 20140522
  3. PREDNISONE. [Concomitant]
     Active Substance: PREDNISONE
  4. PLAQUENIL [Suspect]
     Active Substance: HYDROXYCHLOROQUINE SULFATE
     Route: 048
  5. LETAIRIS [Concomitant]
     Active Substance: AMBRISENTAN
  6. FUROSEMIDE. [Concomitant]
     Active Substance: FUROSEMIDE
  7. OMEPRAZOLE. [Concomitant]
     Active Substance: OMEPRAZOLE

REACTIONS (11)
  - Pancreatitis acute [None]
  - Thrombocytopenia [None]
  - Haematocrit decreased [None]
  - Impaired healing [None]
  - Infusion site infection [None]
  - Gastroenteritis viral [None]
  - Haemoglobin decreased [None]
  - Blood potassium decreased [None]
  - Blood glucose increased [None]
  - Blood albumin decreased [None]
  - Infusion site haematoma [None]

NARRATIVE: CASE EVENT DATE: 20140727
